FAERS Safety Report 6688132-9 (Version None)
Quarter: 2010Q2

REPORT INFORMATION
  Report Type: 
  Country: None (occurrence: None)
  Receive Date: 20100420
  Receipt Date: 20100417
  Transmission Date: 20101027
  Serious: Yes (Other)
  Sender: FDA-Public Use
  Company Number: SA-PFIZER INC-2010048479

PATIENT
  Age: 70 Year
  Sex: Male

DRUGS (1)
  1. TOLTERODINE TARTRATE [Suspect]
     Indication: BLADDER IRRITATION
     Dosage: 4 MG, UNK
     Route: 048

REACTIONS (1)
  - URINARY RETENTION [None]
